FAERS Safety Report 23746741 (Version 1)
Quarter: 2024Q2

REPORT INFORMATION
  Report Type: Spontaneous
  Country: GB (occurrence: GB)
  Receive Date: 20240416
  Receipt Date: 20240416
  Transmission Date: 20240715
  Serious: Yes (Other)
  Sender: FDA-Public Use
  Company Number: None

PATIENT
  Age: 58 Year
  Sex: Male
  Weight: 83 kg

DRUGS (9)
  1. TACROLIMUS [Suspect]
     Active Substance: TACROLIMUS
     Indication: Sunburn
     Dosage: APPLY TWICE DAILY FOR 4 WEEKS THEN TWICE WEEKLY
     Dates: start: 20240305, end: 20240314
  2. AMLODIPINE [Concomitant]
     Active Substance: AMLODIPINE BESYLATE
     Dates: start: 20231211
  3. BETAMETHASONE VALERATE [Concomitant]
     Active Substance: BETAMETHASONE VALERATE
     Dosage: USE AS DIRECTED BD SPARINGLY
     Dates: start: 20240223, end: 20240308
  4. CETRABEN [Concomitant]
     Dosage: APPLY TO THE AFFECTED AREAS OF SKIN 4 TO 6 TIMES A DAY EMOLLIENT CREAM
     Dates: start: 20240223, end: 20240322
  5. CLOBETASONE BUTYRATE [Concomitant]
     Active Substance: CLOBETASONE BUTYRATE
     Dosage: APPLY ONCE DAILY TO AFFECTED AREAS FOR 7 DAYS THEN REDUCE TO TWICE WEEKLY FOR 4 WEEKS...
     Dates: start: 20240129, end: 20240226
  6. DERMOL [Concomitant]
     Active Substance: BENZALKONIUM CHLORIDE\CHLORHEXIDINE HYDROCHLORIDE\ISOPROPYL MYRISTATE\PARAFFIN
     Dosage: USE AS DIRECTED
     Dates: start: 20240108, end: 20240110
  7. ISOPROPYL MYRISTATE\MINERAL OIL [Concomitant]
     Active Substance: ISOPROPYL MYRISTATE\MINERAL OIL
     Dosage: USE AS NEEDED AS NECESSARY
     Dates: start: 20160324
  8. FLUCLOXACILLIN [Concomitant]
     Active Substance: FLUCLOXACILLIN
     Dates: start: 20240108, end: 20240115
  9. KETOCONAZOLE [Concomitant]
     Active Substance: KETOCONAZOLE
     Dosage: USE AS A BODY WASH.
     Dates: start: 20240223, end: 20240322

REACTIONS (2)
  - Erythema [Recovering/Resolving]
  - Pruritus [Unknown]
